FAERS Safety Report 8921970 (Version 1)
Quarter: 2012Q4

REPORT INFORMATION
  Report Type: Spontaneous
  Country: US (occurrence: None)
  Receive Date: 20121119
  Receipt Date: 20121119
  Transmission Date: 20130627
  Serious: Yes (Hospitalization)
  Sender: FDA-Public Use
  Company Number: None

PATIENT
  Age: 61 Year
  Sex: Female

DRUGS (2)
  1. WARFARIN [Suspect]
     Indication: DVT PROPHYLAXIS
     Dosage: 1 TABLET ONCE DAILY PO
LONG TERM PROPHYLAXIS
     Route: 048
     Dates: start: 20110201, end: 20121116
  2. CIPRO 500MG [Suspect]
     Indication: UTI
     Dosage: 1 TABLET TWICE DAILY PO
     Route: 048
     Dates: start: 20121112, end: 20121114

REACTIONS (4)
  - International normalised ratio increased [None]
  - Epistaxis [None]
  - Haemoptysis [None]
  - Drug interaction [None]
